FAERS Safety Report 15130600 (Version 1)
Quarter: 2018Q3

REPORT INFORMATION
  Report Type: Spontaneous
  Country: FR (occurrence: FR)
  Receive Date: 20180711
  Receipt Date: 20180711
  Transmission Date: 20181010
  Serious: Yes (Hospitalization, Other)
  Sender: FDA-Public Use
  Company Number: FR-B. BRAUN MEDICAL INC.-2051728

PATIENT
  Age: 35 Year
  Sex: Female
  Weight: 52 kg

DRUGS (9)
  1. RITONAVIR. [Concomitant]
     Active Substance: RITONAVIR
     Route: 048
  2. PENTACARINAT 300 MG [PENTAMIDINE?ISETIONATE] [Concomitant]
     Route: 048
  3. METRONIDAZOLE INJECTION USP (5 MG/ML) IN PAB? PLASTIC CONTAINER (NDA 0 [Suspect]
     Active Substance: METRONIDAZOLE
     Indication: LUNG DISORDER
     Route: 042
     Dates: start: 20180320, end: 20180321
  4. CEFOTAXIME SODIUM [Suspect]
     Active Substance: CEFOTAXIME SODIUM
     Route: 042
     Dates: start: 20180320, end: 20180321
  5. PARACETAMOL [Concomitant]
     Active Substance: ACETAMINOPHEN
  6. TIVICAY 50 MG [DOLUTEGRAVIR] [Concomitant]
     Route: 048
  7. PHLOROGLUCINOL DIHYDRATE [Concomitant]
     Active Substance: PHLOROGLUCINOL DIHYDRATE
     Route: 048
  8. PREZISTA 600 MG [DARUNAVIR?ETHANOLATE] [Concomitant]
     Route: 048
  9. TRUVADA 200 MG/245 MG [EMTRICITABINE,?TENOFOVIR DISOPROXIL?FUMARATE] [Concomitant]
     Route: 048

REACTIONS (3)
  - Paraesthesia [Recovered/Resolved]
  - Dermatitis bullous [Recovered/Resolved]
  - Therapeutic product cross-reactivity [Recovered/Resolved]

NARRATIVE: CASE EVENT DATE: 20180321
